FAERS Safety Report 5299830-6 (Version None)
Quarter: 2007Q2

REPORT INFORMATION
  Report Type: 
  Country: None (occurrence: None)
  Receive Date: 20070417
  Receipt Date: 20070405
  Transmission Date: 20071010
  Serious: Yes (Other)
  Sender: FDA-Public Use
  Company Number: US-PFIZER INC-2007028708

PATIENT
  Sex: Female

DRUGS (2)
  1. LIPITOR [Suspect]
     Indication: BLOOD CHOLESTEROL INCREASED
     Dates: start: 20010101, end: 20070301
  2. METOPROLOL SUCCINATE [Concomitant]

REACTIONS (2)
  - MUSCLE DISORDER [None]
  - MUSCULAR WEAKNESS [None]
